FAERS Safety Report 9879038 (Version 2)
Quarter: 2014Q1

REPORT INFORMATION
  Report Type: Spontaneous
  Country: US (occurrence: US)
  Receive Date: 20140206
  Receipt Date: 20140206
  Transmission Date: 20141002
  Serious: No
  Sender: FDA-Public Use
  Company Number: US-ALLERGAN-1313419US

PATIENT
  Sex: Female
  Weight: 94.33 kg

DRUGS (8)
  1. BOTOX [Suspect]
     Indication: MIGRAINE
     Dosage: 155 UNITS, SINGLE
     Route: 030
     Dates: start: 20130429, end: 20130429
  2. VESICARE [Concomitant]
     Indication: PRODUCT USED FOR UNKNOWN INDICATION
     Dosage: 10 MG, QD
  3. ADVIL                              /00044201/ [Concomitant]
     Indication: PRODUCT USED FOR UNKNOWN INDICATION
  4. MULTIPLE VITAMINS [Concomitant]
     Indication: PRODUCT USED FOR UNKNOWN INDICATION
  5. TYLENOL W/CODEINE [Concomitant]
     Indication: MIGRAINE
     Dosage: 30 MG, 1-2 TAB, Q12H
  6. RELPAX [Concomitant]
     Indication: PRODUCT USED FOR UNKNOWN INDICATION
     Dosage: 40 MG, UNK
  7. VICODIN [Concomitant]
     Indication: MIGRAINE
     Dosage: 500 MG, 1-2 TAB, QD
  8. PROMETHAZINE HCL [Concomitant]
     Indication: NAUSEA
     Dosage: 12.5 MG, 1-2 TAB, Q8HR

REACTIONS (3)
  - Dizziness [Not Recovered/Not Resolved]
  - Skin tightness [Recovered/Resolved]
  - Hypersensitivity [Unknown]
